FAERS Safety Report 9515667 (Version 1)
Quarter: 2013Q3

REPORT INFORMATION
  Report Type: Spontaneous
  Country: US (occurrence: US)
  Receive Date: 20130911
  Receipt Date: 20130911
  Transmission Date: 20140515
  Serious: Yes (Death, Hospitalization)
  Sender: FDA-Public Use
  Company Number: US-SANOFI-AVENTIS-2013SA089361

PATIENT
  Sex: Male
  Weight: 74 kg

DRUGS (2)
  1. LOVENOX [Suspect]
     Indication: THROMBOSIS PROPHYLAXIS
     Route: 065
  2. LOVENOX [Suspect]
     Indication: THROMBOSIS PROPHYLAXIS
     Route: 065

REACTIONS (6)
  - Loss of consciousness [Unknown]
  - Cardiac arrest [Fatal]
  - Abdominal pain [Unknown]
  - Abdominal distension [Unknown]
  - Wound secretion [Unknown]
  - Thrombocytopenia [Unknown]
